FAERS Safety Report 8284968-1 (Version None)
Quarter: 2012Q2

REPORT INFORMATION
  Report Type: 
  Country: None (occurrence: None)
  Receive Date: 20120413
  Receipt Date: 20110804
  Transmission Date: 20120825
  Serious: No
  Sender: FDA-Public Use
  Company Number: US-ASTRAZENECA-2010SE10011

PATIENT
  Age: 59 Year
  Sex: Female

DRUGS (1)
  1. NEXIUM [Suspect]
     Route: 048

REACTIONS (8)
  - VISUAL IMPAIRMENT [None]
  - OSTEOPOROSIS [None]
  - APHAGIA [None]
  - PAIN [None]
  - ARTHRITIS [None]
  - FALL [None]
  - DYSPHAGIA [None]
  - DRUG DOSE OMISSION [None]
